FAERS Safety Report 25553313 (Version 2)
Quarter: 2025Q3

REPORT INFORMATION
  Report Type: Report from Study
  Country: US (occurrence: US)
  Receive Date: 20250715
  Receipt Date: 20250920
  Transmission Date: 20251020
  Serious: Yes (Other)
  Sender: ABBVIE
  Company Number: US-ABBVIE-6325131

PATIENT
  Age: 63 Year
  Sex: Female

DRUGS (1)
  1. SKYRIZI [Suspect]
     Active Substance: RISANKIZUMAB-RZAA
     Indication: Psoriatic arthropathy
     Route: 058
     Dates: start: 20250314

REACTIONS (7)
  - Arthropathy [Unknown]
  - Shoulder fracture [Unknown]
  - Arthralgia [Not Recovered/Not Resolved]
  - Synovial disorder [Unknown]
  - Rotator cuff syndrome [Unknown]
  - Musculoskeletal disorder [Unknown]
  - Gallbladder disorder [Not Recovered/Not Resolved]

NARRATIVE: CASE EVENT DATE: 20250101
